FAERS Safety Report 9881392 (Version 2)
Quarter: 2014Q1

REPORT INFORMATION
  Report Type: Spontaneous
  Country: US (occurrence: US)
  Receive Date: 20140207
  Receipt Date: 20140303
  Transmission Date: 20141002
  Serious: No
  Sender: FDA-Public Use
  Company Number: US-PFIZER INC-2014032510

PATIENT
  Age: 59 Year
  Sex: Female
  Weight: 70.3 kg

DRUGS (3)
  1. ZOLOFT [Suspect]
     Indication: DEPRESSION
     Dosage: UNK
     Route: 048
  2. ZOLOFT [Suspect]
     Dosage: UNK
     Route: 048
     Dates: start: 201401
  3. LORAZEPAM [Concomitant]
     Indication: ANXIETY
     Dosage: 1 MG, TWICE A DAY

REACTIONS (1)
  - Depression [Recovered/Resolved]
